FAERS Safety Report 12629902 (Version 3)
Quarter: 2016Q3

REPORT INFORMATION
  Report Type: Spontaneous
  Country: IT (occurrence: IT)
  Receive Date: 20160808
  Receipt Date: 20160818
  Transmission Date: 20161109
  Serious: Yes (Other)
  Sender: FDA-Public Use
  Company Number: IT-PFIZER INC-2016362419

PATIENT
  Age: 90 Year
  Sex: Female

DRUGS (10)
  1. TRADJENTA [Concomitant]
     Active Substance: LINAGLIPTIN
     Dosage: UNK
  2. DONEPEZIL MYLAN [Concomitant]
     Active Substance: DONEPEZIL
     Dosage: UNK
  3. ELIQUIS [Concomitant]
     Active Substance: APIXABAN
     Dosage: UNK
  4. NORVASC [Suspect]
     Active Substance: AMLODIPINE BESYLATE
     Dosage: 5 MG, DAILY
     Route: 065
  5. BISOPROLOL FUMARATE. [Interacting]
     Active Substance: BISOPROLOL FUMARATE
     Dosage: UNK
     Route: 065
  6. LANOXIN [Interacting]
     Active Substance: DIGOXIN
     Dosage: UNK
     Route: 065
  7. COMBISARTAN [Interacting]
     Active Substance: HYDROCHLOROTHIAZIDE\VALSARTAN
     Dosage: UNK
     Route: 065
  8. TRITTICO [Concomitant]
     Active Substance: TRAZODONE HYDROCHLORIDE
     Dosage: UNK
  9. MEMANTINA MERZ [Concomitant]
     Dosage: UNK
  10. AMIODARONE HCL [Interacting]
     Active Substance: AMIODARONE HYDROCHLORIDE
     Dosage: 200 MG, DAILY
     Route: 065

REACTIONS (4)
  - Syncope [Unknown]
  - Hypotension [Unknown]
  - Drug interaction [Unknown]
  - Bradycardia [Unknown]

NARRATIVE: CASE EVENT DATE: 20160630
